FAERS Safety Report 4790408-7 (Version None)
Quarter: 2005Q4

REPORT INFORMATION
  Report Type: 
  Country: None (occurrence: None)
  Receive Date: 20051006
  Receipt Date: 20050921
  Transmission Date: 20060501
  Serious: Yes (Life-Threatening, Hospitalization)
  Sender: FDA-Public Use
  Company Number: GBWYE995721SEP05

PATIENT
  Age: 43 Year
  Sex: Female
  Weight: 115 kg

DRUGS (6)
  1. ENBREL [Suspect]
     Indication: RHEUMATOID ARTHRITIS
     Route: 058
     Dates: start: 20030801
  2. METHOTREXATE [Concomitant]
  3. PIROXICAM [Concomitant]
     Indication: RHEUMATOID ARTHRITIS
     Route: 048
  4. FERROUS SULFATE [Concomitant]
     Indication: ANAEMIA
     Route: 048
  5. FOLIC ACID [Concomitant]
     Indication: PROPHYLAXIS
     Route: 048
  6. RANITIDINE [Concomitant]
     Indication: DYSPEPSIA
     Dosage: 150MG AS NEEDED
     Route: 048

REACTIONS (3)
  - HYSTERECTOMY [None]
  - PERITONITIS [None]
  - SEPSIS [None]
